FAERS Safety Report 5807976-6 (Version None)
Quarter: 2008Q3

REPORT INFORMATION
  Report Type: 
  Country: None (occurrence: None)
  Receive Date: 20080711
  Receipt Date: 20080702
  Transmission Date: 20090109
  Serious: Yes (Hospitalization, Other)
  Sender: FDA-Public Use
  Company Number: US-PFIZER INC-2008055588

PATIENT
  Sex: Male
  Weight: 122.72 kg

DRUGS (7)
  1. VIAGRA [Suspect]
     Indication: ERECTILE DYSFUNCTION
     Route: 048
  2. ACETYLSALICYLIC ACID SRT [Concomitant]
  3. AMIODARONE HCL [Concomitant]
  4. NEXIUM [Concomitant]
  5. BENICAR [Concomitant]
  6. METOPROLOL [Concomitant]
  7. WARFARIN SODIUM [Concomitant]

REACTIONS (2)
  - CARDIAC OPERATION [None]
  - HYPOACUSIS [None]
